FAERS Safety Report 9396785 (Version 1)
Quarter: 2013Q3

REPORT INFORMATION
  Report Type: Spontaneous
  Country: CH (occurrence: CH)
  Receive Date: 20130712
  Receipt Date: 20130712
  Transmission Date: 20140515
  Serious: Yes (Life-Threatening)
  Sender: FDA-Public Use
  Company Number: CH-ROCHE-1247226

PATIENT
  Age: 55 Year
  Sex: Male
  Weight: 74 kg

DRUGS (5)
  1. AVASTIN [Suspect]
     Indication: COLON CANCER
     Dosage: LAST DOSE PRIOR TO SAE ON 10/JUN/2013
     Route: 041
  2. 5-FU [Concomitant]
     Indication: COLON CANCER
     Route: 040
  3. 5-FU [Concomitant]
     Route: 050
  4. OXALIPLATIN [Concomitant]
     Indication: COLON CANCER
     Route: 065
  5. FOLINIC ACID [Concomitant]
     Indication: COLON CANCER
     Route: 065

REACTIONS (1)
  - Cardiac arrest [Recovered/Resolved]
